FAERS Safety Report 4416120-1 (Version None)
Quarter: 2004Q3

REPORT INFORMATION
  Report Type: 
  Country: None (occurrence: None)
  Receive Date: 20040730
  Receipt Date: 20040716
  Transmission Date: 20050211
  Serious: Yes (Other)
  Sender: FDA-Public Use
  Company Number: JP-JNJFOC-20040705700

PATIENT
  Age: 55 Year
  Sex: Male

DRUGS (3)
  1. FENTANYL [Suspect]
     Indication: CANCER PAIN
     Dosage: TRANSDERMAL
     Route: 062
  2. MORPHINE [Concomitant]
  3. KETAMINE HCL [Concomitant]

REACTIONS (2)
  - ILEUS [None]
  - PARALYSIS [None]
